FAERS Safety Report 15862062 (Version 1)
Quarter: 2019Q1

REPORT INFORMATION
  Report Type: Spontaneous
  Country: FR (occurrence: FR)
  Receive Date: 20190124
  Receipt Date: 20190124
  Transmission Date: 20190417
  Serious: Yes (Life-Threatening)
  Sender: FDA-Public Use
  Company Number: FR-SA-2019SA016199

PATIENT
  Age: 69 Year
  Sex: Male
  Weight: 64 kg

DRUGS (18)
  1. PREDNISOLONE. [Concomitant]
     Active Substance: PREDNISOLONE
     Dosage: 1 DF, QD
     Route: 048
  2. SINGULAIR [Concomitant]
     Active Substance: MONTELUKAST SODIUM
     Indication: PREMEDICATION
     Dosage: 10 MG, UNK
     Route: 048
  3. SERESTA [Concomitant]
     Active Substance: OXAZEPAM
     Dosage: 1 DF, QD
     Route: 048
  4. MACROGOL [Concomitant]
     Active Substance: POLYETHYLENE GLYCOLS
     Dosage: 1 DF, UNK
     Route: 048
  5. DESLORATADINE. [Concomitant]
     Active Substance: DESLORATADINE
     Indication: PREMEDICATION
     Dosage: 5 MG, UNK
     Route: 048
  6. RACECADOTRIL [Concomitant]
     Active Substance: RACECADOTRIL
     Dosage: 1 DF, UNK
     Route: 048
  7. OXALIPLATIN. [Suspect]
     Active Substance: OXALIPLATIN
     Indication: CHEMOTHERAPY
     Dosage: 1 DF, UNK
     Route: 041
     Dates: start: 20180306
  8. DENOSUMAB [Concomitant]
     Active Substance: DENOSUMAB
     Dosage: 1 DF, UNK
     Route: 048
  9. METOCLOPRAMIDE. [Concomitant]
     Active Substance: METOCLOPRAMIDE
     Dosage: 1 DF, UNK
     Route: 048
  10. KEPPRA [Concomitant]
     Active Substance: LEVETIRACETAM
     Dosage: 1000 MG, QD
     Route: 048
  11. FILGRASTIM [Concomitant]
     Active Substance: FILGRASTIM
     Dosage: 1 DF, UNK
     Route: 048
  12. ONDANSETRON [Concomitant]
     Active Substance: ONDANSETRON
     Dosage: 1 DF
     Route: 048
  13. LOPERAMIDE HYDROCHLORIDE. [Concomitant]
     Active Substance: LOPERAMIDE HYDROCHLORIDE
     Dosage: 1 DF, UNK
     Route: 048
  14. ATENOLOL. [Concomitant]
     Active Substance: ATENOLOL
     Dosage: 50 MG, QD
     Route: 048
  15. APREPITANT. [Concomitant]
     Active Substance: APREPITANT
     Indication: PREMEDICATION
     Dosage: 80 MG, UNK
     Route: 048
  16. ESOMEPRAZOLE. [Concomitant]
     Active Substance: ESOMEPRAZOLE MAGNESIUM
     Dosage: 20 MG, QD
     Route: 048
  17. FLUOROURACIL. [Suspect]
     Active Substance: FLUOROURACIL
     Indication: CHEMOTHERAPY
     Dosage: 1 DF, UNK
     Route: 041
     Dates: start: 20180306
  18. DIFFU K [Concomitant]
     Active Substance: POTASSIUM CHLORIDE
     Dosage: 600 MG, QD
     Route: 048

REACTIONS (1)
  - Type III immune complex mediated reaction [Recovered/Resolved]

NARRATIVE: CASE EVENT DATE: 20180307
